FAERS Safety Report 14485765 (Version 2)
Quarter: 2020Q1

REPORT INFORMATION
  Report Type: Spontaneous
  Country: IE (occurrence: IE)
  Receive Date: 20180205
  Receipt Date: 20200129
  Transmission Date: 20200409
  Serious: Yes (Life-Threatening, Other)
  Sender: FDA-Public Use
  Company Number: IE-AMGEN-IRLSP2018013463

PATIENT
  Age: 72 Year
  Sex: Female

DRUGS (3)
  1. PROLIA [Suspect]
     Active Substance: DENOSUMAB
     Dosage: 60 MILLIGRAM, Q6MO
     Route: 058
     Dates: start: 201711
  2. XANAX [Concomitant]
     Active Substance: ALPRAZOLAM
     Dosage: FOUR PER DAY
     Route: 048
  3. PROLIA [Suspect]
     Active Substance: DENOSUMAB
     Indication: OSTEOPOROSIS
     Dosage: 60 MILLIGRAM, Q6MO
     Route: 058
     Dates: start: 2015

REACTIONS (16)
  - Spinal fracture [Not Recovered/Not Resolved]
  - Gingival disorder [Unknown]
  - Suicide attempt [Not Recovered/Not Resolved]
  - Tinnitus [Not Recovered/Not Resolved]
  - Noninfective gingivitis [Not Recovered/Not Resolved]
  - Malaise [Not Recovered/Not Resolved]
  - Pain [Not Recovered/Not Resolved]
  - Pain in jaw [Not Recovered/Not Resolved]
  - Agitation [Not Recovered/Not Resolved]
  - Tooth disorder [Unknown]
  - Bone pain [Not Recovered/Not Resolved]
  - Disturbance in attention [Unknown]
  - Malaise [Unknown]
  - Decreased appetite [Not Recovered/Not Resolved]
  - Depressed mood [Unknown]
  - Headache [Not Recovered/Not Resolved]

NARRATIVE: CASE EVENT DATE: 2015
